FAERS Safety Report 16916478 (Version 1)
Quarter: 2019Q4

REPORT INFORMATION
  Report Type: Spontaneous
  Country: US (occurrence: US)
  Receive Date: 20191014
  Receipt Date: 20191014
  Transmission Date: 20200122
  Serious: Yes (Other)
  Sender: FDA-Public Use
  Company Number: US-BEH-2019108095

PATIENT
  Age: 76 Year
  Sex: Female

DRUGS (2)
  1. ALCOHOL PAD [Suspect]
     Active Substance: ISOPROPYL ALCOHOL
     Indication: VON WILLEBRAND^S DISEASE
     Dosage: 5000 INTERNATIONAL UNIT, PRN (DAILY AS NEEDED)
     Route: 042
     Dates: start: 20150928
  2. HUMATE-P [Suspect]
     Active Substance: HUMAN COAGULATION FACTOR VIII/VON WILLEBRAND FACTOR COMPLEX
     Indication: VON WILLEBRAND^S DISEASE
     Dosage: 5000 INTERNATIONAL UNIT, PRN (DAILY AS NEEDED)
     Route: 042
     Dates: start: 20150928

REACTIONS (1)
  - Cataract [Unknown]
